FAERS Safety Report 19968222 (Version 1)
Quarter: 2021Q4

REPORT INFORMATION
  Report Type: Spontaneous
  Country: US (occurrence: US)
  Receive Date: 20211019
  Receipt Date: 20211019
  Transmission Date: 20220303
  Serious: Yes (Other)
  Sender: FDA-Public Use
  Company Number: 2021A773878

PATIENT
  Age: 64 Year
  Sex: Male

DRUGS (14)
  1. LYNPARZA [Suspect]
     Active Substance: OLAPARIB
     Indication: Prostate cancer
     Route: 048
     Dates: start: 2021
  2. PROVENGE [Concomitant]
     Active Substance: SIPULEUCEL-T
     Dates: start: 2015
  3. ABIRATERONE. [Concomitant]
     Active Substance: ABIRATERONE ACETATE
     Dates: start: 2016, end: 2017
  4. PEMBROLIZUMAB [Concomitant]
     Active Substance: PEMBROLIZUMAB
     Dates: start: 2017, end: 2018
  5. ENZALUTAMIDE [Concomitant]
     Active Substance: ENZALUTAMIDE
     Dates: start: 2019
  6. CABAZITAXEL [Concomitant]
     Active Substance: CABAZITAXEL
     Dates: start: 2020
  7. DEGARELIX [Concomitant]
     Active Substance: DEGARELIX
     Dates: start: 2013
  8. ELIGARD [Concomitant]
     Active Substance: LEUPROLIDE ACETATE
     Dates: start: 2013
  9. TRELSTAR [Concomitant]
     Active Substance: TRIPTORELIN PAMOATE
     Dates: start: 2013
  10. DOCETAXEL [Concomitant]
     Active Substance: DOCETAXEL
  11. GS5628 [Concomitant]
     Dates: start: 2017
  12. INTERMITTENT BIPOLAR ANDROGEN THERAPY [Concomitant]
     Dates: start: 2021
  13. INVITAE [Concomitant]
     Dates: start: 2017
  14. GUARDANT [Concomitant]
     Dates: start: 2017

REACTIONS (6)
  - Blood testosterone decreased [Unknown]
  - Metastases to bone [Unknown]
  - Prostatic specific antigen increased [Unknown]
  - Lymphadenopathy [Unknown]
  - Bone pain [Unknown]
  - Hypophagia [Unknown]
